FAERS Safety Report 14427194 (Version 1)
Quarter: 2018Q1

REPORT INFORMATION
  Report Type: Spontaneous
  Country: US (occurrence: US)
  Receive Date: 20180123
  Receipt Date: 20180123
  Transmission Date: 20180509
  Serious: No
  Sender: FDA-Public Use
  Company Number: US-IMPAX LABORATORIES, INC-2017-IPXL-03017

PATIENT
  Age: 66 Year
  Sex: Female
  Weight: 63 kg

DRUGS (8)
  1. PROPRANOLOL [Concomitant]
     Active Substance: PROPRANOLOL HYDROCHLORIDE
     Indication: TREMOR
     Dosage: 1 DF, 1 /DAY
     Route: 065
  2. RYTARY [Suspect]
     Active Substance: CARBIDOPA\LEVODOPA
     Dosage: 61.25/245MG, 2CAPSULES 3 TIMES DAILY THEN 1CAPSULE EVENING AND 1CAPSULE BEDTIME,48.75/195 1 CAP
     Route: 048
     Dates: end: 2017
  3. RYTARY [Suspect]
     Active Substance: CARBIDOPA\LEVODOPA
     Indication: PARKINSON^S DISEASE
     Dosage: 48.75/195 MG (2-2-2-1 CAPSULE) AND 61.25/245 MG (1 CAPSULE), UNK
     Route: 048
  4. RYTARY [Suspect]
     Active Substance: CARBIDOPA\LEVODOPA
     Dosage: 61.25/245MG,1CAPSULE 5 TIMES DAILY AND 48.75/145MG 1 CAPSULE 5 TIMES DAILY
     Route: 048
  5. AMANTADINE. [Concomitant]
     Active Substance: AMANTADINE HYDROCHLORIDE
     Indication: PARKINSON^S DISEASE
     Dosage: 10 MG, 3 /DAY
     Route: 065
  6. SELEGILINE [Concomitant]
     Active Substance: SELEGILINE
     Indication: PARKINSON^S DISEASE
     Dosage: 5 MG, 2 /DAY
     Route: 065
  7. RYTARY [Suspect]
     Active Substance: CARBIDOPA\LEVODOPA
     Dosage: 61.25MG/245MG 2 CAPSULES 3 TIMES DAILY THEN 1 CAPSULE AT BEDTIME, TOGETHER WITH 48.75MG/195MG 1 CAPS
     Route: 048
     Dates: start: 201709, end: 2017
  8. MIRAPEX [Concomitant]
     Active Substance: PRAMIPEXOLE DIHYDROCHLORIDE
     Indication: DYSKINESIA
     Dosage: 3 MG, 1 /DAY
     Route: 065

REACTIONS (3)
  - Accidental underdose [Unknown]
  - Device breakage [Unknown]
  - Dyskinesia [Recovered/Resolved]
